FAERS Safety Report 4502679-2 (Version None)
Quarter: 2004Q4

REPORT INFORMATION
  Report Type: 
  Country: None (occurrence: None)
  Receive Date: 20041110
  Receipt Date: 20041025
  Transmission Date: 20050328
  Serious: No
  Sender: FDA-Public Use
  Company Number: 76296

PATIENT
  Sex: Female

DRUGS (2)
  1. VINCRISTINE [Suspect]
  2. ITRACONAZOLE [Suspect]

REACTIONS (2)
  - DISEASE PROGRESSION [None]
  - LEUKOENCEPHALOPATHY [None]
